FAERS Safety Report 3812755 (Version 3)
Quarter: 2015Q4

REPORT INFORMATION
  Report Type: Report from Study
  Country: US (occurrence: US)
  Receive Date: 20020711
  Receipt Date: 20151228
  Transmission Date: 20160305
  Serious: Yes (Other)
  Sender: FDA-Public Use
  Company Number: US-BRISTOL-MYERS SQUIBB COMPANY-11936044

PATIENT
  Age: 27 Year
  Sex: Female

DRUGS (3)
  1. ZERIT [Suspect]
     Active Substance: STAVUDINE
     Indication: ANTIRETROVIRAL THERAPY
     Dosage: 80 MG, QD
     Route: 048
  2. SUSTIVA [Suspect]
     Active Substance: EFAVIRENZ
     Indication: ANTIRETROVIRAL THERAPY
     Dosage: 600 MG, QD
     Route: 048
  3. DIDANOSINE. [Suspect]
     Active Substance: DIDANOSINE
     Indication: ANTIRETROVIRAL THERAPY
     Dosage: 200 MG, UNK
     Route: 048

REACTIONS (3)
  - Pregnancy [Recovered/Resolved]
  - Abortion spontaneous [Unknown]
  - Placental disorder [Unknown]

NARRATIVE: CASE EVENT DATE: 20020212
